FAERS Safety Report 19661648 (Version 2)
Quarter: 2023Q1

REPORT INFORMATION
  Report Type: Spontaneous
  Country: US (occurrence: US)
  Receive Date: 20210805
  Receipt Date: 20230203
  Transmission Date: 20230417
  Serious: No
  Sender: FDA-Public Use
  Company Number: US-PFIZER INC-202100973883

PATIENT
  Age: 37 Year
  Sex: Female

DRUGS (3)
  1. LORBRENA [Suspect]
     Active Substance: LORLATINIB
     Indication: Non-small cell lung cancer metastatic
     Dosage: 75 MG
  2. LORBRENA [Suspect]
     Active Substance: LORLATINIB
     Indication: Inflammatory myofibroblastic tumour
     Dosage: 50 MG
  3. LORBRENA [Suspect]
     Active Substance: LORLATINIB
     Indication: Mutagenic effect

REACTIONS (2)
  - Cognitive disorder [Unknown]
  - Fatigue [Unknown]
